FAERS Safety Report 16943895 (Version 1)
Quarter: 2019Q4

REPORT INFORMATION
  Report Type: Spontaneous
  Country: US (occurrence: US)
  Receive Date: 20191022
  Receipt Date: 20191022
  Transmission Date: 20200122
  Serious: No
  Sender: FDA-Public Use
  Company Number: US-ASTRAZENECA-2019SF38074

PATIENT
  Age: 1000 Month
  Sex: Male
  Weight: 112.9 kg

DRUGS (1)
  1. BYDUREON BCISE [Suspect]
     Active Substance: EXENATIDE
     Route: 065
     Dates: start: 201907

REACTIONS (3)
  - Product use issue [Unknown]
  - Weight decreased [Unknown]
  - Device leakage [Unknown]

NARRATIVE: CASE EVENT DATE: 201908
